FAERS Safety Report 9224370 (Version 1)
Quarter: 2013Q1

REPORT INFORMATION
  Report Type: Spontaneous
  Country: US (occurrence: None)
  Receive Date: 20120917
  Receipt Date: 20120917
  Transmission Date: 20140127
  Serious: Yes (Hospitalization)
  Sender: FDA-Public Use
  Company Number: 2012SP020122

PATIENT
  Age: 35 Year
  Sex: Female
  Weight: 78.47 kg

DRUGS (1)
  1. IMPLANON [Suspect]
     Indication: PRODUCT USED FOR UNKNOWN INDICATION
     Dates: start: 20090331, end: 20120329

REACTIONS (3)
  - Implant site infection [None]
  - Implant site abscess [None]
  - Application site pain [None]
